FAERS Safety Report 25677827 (Version 1)
Quarter: 2025Q3

REPORT INFORMATION
  Report Type: Spontaneous
  Country: US (occurrence: None)
  Receive Date: 20250813
  Receipt Date: 20250813
  Transmission Date: 20251021
  Serious: No
  Sender: INCYTE
  Company Number: US-INCYTE CORPORATION-2025IN003081

PATIENT
  Age: 73 Year

DRUGS (2)
  1. JAKAFI [Suspect]
     Active Substance: RUXOLITINIB
     Indication: Myelofibrosis
     Dosage: 20 MILLIGRAM, BID
  2. JAKAFI [Suspect]
     Active Substance: RUXOLITINIB
     Indication: Anaemia
     Dosage: 20 MILLIGRAM, BID

REACTIONS (6)
  - Flatulence [Unknown]
  - Product dose omission issue [Unknown]
  - Constipation [Unknown]
  - Full blood count abnormal [Unknown]
  - Migraine with aura [Unknown]
  - Off label use [Unknown]
